FAERS Safety Report 8225054-6 (Version None)
Quarter: 2012Q1

REPORT INFORMATION
  Report Type: 
  Country: None (occurrence: None)
  Receive Date: 20120321
  Receipt Date: 20120309
  Transmission Date: 20120608
  Serious: Yes (Hospitalization)
  Sender: FDA-Public Use
  Company Number: FR-ROCHE-1047834

PATIENT
  Age: 52 Year
  Sex: Female

DRUGS (2)
  1. HYDREA [Concomitant]
     Dates: start: 20091201, end: 20101020
  2. PEGASYS [Suspect]
     Indication: MYELOFIBROSIS
     Route: 058
     Dates: start: 20100902, end: 20111214

REACTIONS (1)
  - PERICARDITIS [None]
